FAERS Safety Report 7492371-7 (Version None)
Quarter: 2011Q2

REPORT INFORMATION
  Report Type: 
  Country: None (occurrence: None)
  Receive Date: 20110519
  Receipt Date: 20110421
  Transmission Date: 20111010
  Serious: Yes (Hospitalization, Other)
  Sender: FDA-Public Use
  Company Number: US-BAYER-201030644NA

PATIENT
  Age: 18 Year
  Sex: Female
  Weight: 79 kg

DRUGS (4)
  1. VITAMINS [Concomitant]
     Dosage: UNK UNK, QD
  2. ESTER C WITH FLAVONOIDS [Concomitant]
  3. YAZ [Suspect]
     Indication: MENSTRUATION IRREGULAR
  4. YAZ [Suspect]
     Indication: ORAL CONTRACEPTION
     Dosage: UNK
     Route: 048
     Dates: start: 20070101, end: 20090101

REACTIONS (6)
  - INJURY [None]
  - CHOLECYSTITIS CHRONIC [None]
  - PAIN [None]
  - ORGAN FAILURE [None]
  - GALLBLADDER DISORDER [None]
  - BILE DUCT STONE [None]
